FAERS Safety Report 14092060 (Version 1)
Quarter: 2017Q4

REPORT INFORMATION
  Report Type: Spontaneous
  Country: BR (occurrence: BR)
  Receive Date: 20171016
  Receipt Date: 20171016
  Transmission Date: 20180321
  Serious: Yes (Other)
  Sender: FDA-Public Use
  Company Number: PHHY2017BR149656

PATIENT
  Age: 74 Year
  Sex: Female

DRUGS (5)
  1. AZOPT [Suspect]
     Active Substance: BRINZOLAMIDE
     Indication: PRODUCT USED FOR UNKNOWN INDICATION
     Dosage: UNK
     Route: 047
     Dates: start: 2008
  2. LUMIGAN [Suspect]
     Active Substance: BIMATOPROST
     Dosage: UNK
     Route: 047
     Dates: start: 2014, end: 201602
  3. AZORGA [Suspect]
     Active Substance: BRINZOLAMIDE\TIMOLOL MALEATE
     Indication: PRODUCT USED FOR UNKNOWN INDICATION
     Dosage: UNK
     Route: 047
  4. LUMIGAN [Suspect]
     Active Substance: BIMATOPROST
     Indication: PRODUCT USED FOR UNKNOWN INDICATION
     Dosage: UNK
     Route: 047
     Dates: start: 2007, end: 2008
  5. XALATAN [Suspect]
     Active Substance: LATANOPROST
     Indication: PRODUCT USED FOR UNKNOWN INDICATION
     Dosage: UNK
     Route: 047
     Dates: start: 2008, end: 2014

REACTIONS (12)
  - Tibia fracture [Unknown]
  - Fall [Unknown]
  - Foot fracture [Unknown]
  - Ocular hyperaemia [Unknown]
  - Dyspepsia [Unknown]
  - Cataract [Unknown]
  - Pain in extremity [Unknown]
  - Keratitis [Unknown]
  - Upper limb fracture [Unknown]
  - Tremor [Unknown]
  - Malaise [Unknown]
  - Visual field defect [Unknown]

NARRATIVE: CASE EVENT DATE: 2012
